FAERS Safety Report 18617220 (Version 1)
Quarter: 2020Q4

REPORT INFORMATION
  Report Type: Report from Study
  Country: CA (occurrence: CA)
  Receive Date: 20201215
  Receipt Date: 20201215
  Transmission Date: 20210114
  Serious: Yes (Hospitalization, Other)
  Sender: FDA-Public Use
  Company Number: CA-HLS-202006602

PATIENT
  Age: 74 Year
  Sex: Female

DRUGS (9)
  1. FERROUS SULFATE. [Concomitant]
     Active Substance: FERROUS SULFATE
     Indication: ANAEMIA
     Route: 048
     Dates: start: 20150705
  2. OLANZAPINE. [Concomitant]
     Active Substance: OLANZAPINE
     Route: 048
     Dates: start: 20200705
  3. VALPROIC ACID. [Concomitant]
     Active Substance: VALPROIC ACID
     Dosage: AT BEDTIME
     Route: 048
     Dates: start: 20150705
  4. CLOZARIL [Suspect]
     Active Substance: CLOZAPINE
     Indication: SCHIZOPHRENIA
     Dosage: 300 MG TWICE/DAY REDUCED TO 15 MG DAILY.
     Route: 048
     Dates: start: 20150705, end: 20200610
  5. SITAGLIPTIN [Concomitant]
     Active Substance: SITAGLIPTIN
     Route: 048
  6. CLOZARIL [Suspect]
     Active Substance: CLOZAPINE
     Indication: SCHIZOPHRENIA
     Route: 048
     Dates: start: 20090811, end: 20200603
  7. PERPHENAZINE. [Concomitant]
     Active Substance: PERPHENAZINE
     Route: 065
  8. ABILIFY [Concomitant]
     Active Substance: ARIPIPRAZOLE
     Route: 065
  9. CLOZARIL [Suspect]
     Active Substance: CLOZAPINE
     Indication: SCHIZOPHRENIA
     Dosage: STARTED ON 12.5 MG TID. PRESENTLY ON 25 MG 3 TIMES/DAY
     Route: 065
     Dates: start: 20201105

REACTIONS (25)
  - Haemoglobin decreased [Unknown]
  - Mean cell volume decreased [Unknown]
  - Renal failure [Recovered/Resolved]
  - Blood creatinine increased [Unknown]
  - Blood magnesium increased [Unknown]
  - Mean cell haemoglobin decreased [Recovered/Resolved]
  - Blood parathyroid hormone decreased [Unknown]
  - Urine protein/creatinine ratio increased [Unknown]
  - Blood chloride decreased [Recovered/Resolved]
  - Adjusted calcium increased [Unknown]
  - Light chain analysis decreased [Unknown]
  - Blood sodium decreased [Unknown]
  - Haematocrit decreased [Unknown]
  - Light chain analysis increased [Unknown]
  - Mean cell haemoglobin concentration decreased [Recovered/Resolved]
  - Blood potassium increased [Recovered/Resolved]
  - Glomerular filtration rate decreased [Unknown]
  - Cognitive disorder [Unknown]
  - Blood glucose increased [Unknown]
  - Urine albumin/creatinine ratio increased [Unknown]
  - Blood albumin increased [Unknown]
  - Blood calcium increased [Unknown]
  - Monocyte count increased [Unknown]
  - Red cell distribution width increased [Unknown]
  - Blood urea increased [Unknown]

NARRATIVE: CASE EVENT DATE: 20201104
